FAERS Safety Report 9531714 (Version 1)
Quarter: 2013Q3

REPORT INFORMATION
  Report Type: Spontaneous
  Country: US (occurrence: None)
  Receive Date: 20130917
  Receipt Date: 20130917
  Transmission Date: 20140515
  Serious: Yes (Life-Threatening)
  Sender: FDA-Public Use
  Company Number: None

PATIENT
  Age: 76 Year
  Sex: Female
  Weight: 67.8 kg

DRUGS (4)
  1. PROPOFOL [Suspect]
     Indication: ENDOSCOPY
     Route: 042
     Dates: start: 20110415, end: 20110415
  2. LIDOCAINE [Suspect]
  3. ASPIRIN [Concomitant]
  4. SUCCINYLCHOLINE [Concomitant]

REACTIONS (3)
  - Oxygen saturation decreased [None]
  - Cardiac arrest [None]
  - Ventricular tachycardia [None]
